FAERS Safety Report 11750018 (Version 2)
Quarter: 2015Q4

REPORT INFORMATION
  Report Type: Spontaneous
  Country: US (occurrence: US)
  Receive Date: 20151118
  Receipt Date: 20151124
  Transmission Date: 20160304
  Serious: Yes (Hospitalization)
  Sender: FDA-Public Use
  Company Number: US-BRAINTREE LABORATORIES-150450

PATIENT
  Age: 69 Year
  Sex: Male

DRUGS (1)
  1. SUPREP BOWEL PREP [Suspect]
     Active Substance: MAGNESIUM SULFATE\POTASSIUM SULFATE\SODIUM SULFATE
     Indication: COLONOSCOPY
     Dosage: 2 X 6 OZ. BOTTLE
     Route: 048
     Dates: start: 20151028, end: 20151029

REACTIONS (6)
  - Abdominal pain lower [None]
  - Urinary retention [None]
  - Urinary tract infection [None]
  - Initial insomnia [None]
  - Cystitis [None]
  - Prostatomegaly [None]

NARRATIVE: CASE EVENT DATE: 20151029
